FAERS Safety Report 19948352 (Version 19)
Quarter: 2025Q1

REPORT INFORMATION
  Report Type: Report from Study
  Country: CO (occurrence: CO)
  Receive Date: 20211012
  Receipt Date: 20250114
  Transmission Date: 20250409
  Serious: Yes (Other)
  Sender: TAKEDA
  Company Number: CO-TAKEDA-CO201849721

PATIENT
  Age: 43 Year
  Sex: Female
  Weight: 69 kg

DRUGS (15)
  1. ICATIBANT [Suspect]
     Active Substance: ICATIBANT ACETATE
     Indication: Product used for unknown indication
     Dosage: 30 MILLIGRAM, Q6HR
     Dates: start: 20171101
  2. ICATIBANT [Suspect]
     Active Substance: ICATIBANT ACETATE
  3. ICATIBANT [Suspect]
     Active Substance: ICATIBANT ACETATE
     Dates: start: 20190626, end: 20190626
  4. ICATIBANT [Suspect]
     Active Substance: ICATIBANT ACETATE
     Dates: start: 20190728, end: 20190728
  5. ICATIBANT [Suspect]
     Active Substance: ICATIBANT ACETATE
     Dates: start: 20190825, end: 20190825
  6. ICATIBANT [Suspect]
     Active Substance: ICATIBANT ACETATE
  7. ICATIBANT [Suspect]
     Active Substance: ICATIBANT ACETATE
  8. ICATIBANT [Suspect]
     Active Substance: ICATIBANT ACETATE
     Dosage: UNK UNK, Q8HR
  9. ICATIBANT [Suspect]
     Active Substance: ICATIBANT ACETATE
     Dosage: UNK UNK, MONTHLY
  10. ICATIBANT [Suspect]
     Active Substance: ICATIBANT ACETATE
  11. ICATIBANT [Suspect]
     Active Substance: ICATIBANT ACETATE
  12. TAKHZYRO [Suspect]
     Active Substance: LANADELUMAB-FLYO
     Indication: Hereditary angioedema
     Dosage: 300 MILLIGRAM, 2/MONTH
     Dates: start: 20221129
  13. TAKHZYRO [Suspect]
     Active Substance: LANADELUMAB-FLYO
  14. TAKHZYRO [Suspect]
     Active Substance: LANADELUMAB-FLYO
     Dosage: 300 MILLIGRAM, 2/MONTH
  15. TAKHZYRO [Suspect]
     Active Substance: LANADELUMAB-FLYO
     Dosage: 300 MILLIGRAM, MONTHLY

REACTIONS (11)
  - Hyperprolactinaemia [Unknown]
  - Body height decreased [Unknown]
  - Weight decreased [Unknown]
  - Weight increased [Unknown]
  - Body height increased [Unknown]
  - Breast disorder [Unknown]
  - Retracted nipple [Unknown]
  - Inappropriate schedule of product administration [Unknown]
  - Influenza like illness [Not Recovered/Not Resolved]
  - Treatment noncompliance [Unknown]
  - Hereditary angioedema [Recovered/Resolved]

NARRATIVE: CASE EVENT DATE: 20210713
